FAERS Safety Report 9309925 (Version 1)
Quarter: 2013Q2

REPORT INFORMATION
  Report Type: Spontaneous
  Country: US (occurrence: US)
  Receive Date: 20130527
  Receipt Date: 20130527
  Transmission Date: 20140414
  Serious: Yes (Death)
  Sender: FDA-Public Use
  Company Number: US-AMGEN-USASP2013036653

PATIENT
  Age: 75 Year
  Sex: Female

DRUGS (13)
  1. ENBREL [Suspect]
     Indication: PRODUCT USED FOR UNKNOWN INDICATION
     Dosage: 25 MG, 2 TIMES/WK
     Route: 058
  2. VERAPAMIL [Concomitant]
     Dosage: 180 MG, UNK
  3. COUMADIN                           /00014802/ [Concomitant]
     Dosage: 1 MG, UNK
  4. FOLIC ACID [Concomitant]
     Dosage: 1 MG, UNK
  5. PREDNISONE [Concomitant]
     Dosage: 1 MG, UNK
  6. FUROSEMIDE [Concomitant]
     Dosage: 20 MG, UNK
  7. POTASSIUM [Concomitant]
     Dosage: 25 MEQ,EF UNK
  8. PREVACID [Concomitant]
     Dosage: 30 MG, DR
  9. VITAMIN D                          /00107901/ [Concomitant]
     Dosage: 1000 UNIT, UNK
  10. VITAMIN C                          /00008001/ [Concomitant]
     Dosage: 500 MG, UNK
  11. VITAMIN E                          /00110501/ [Concomitant]
     Dosage: 1000 UNIT, UNK
  12. PROLIA [Concomitant]
     Dosage: 60 MG/ML, UNK
  13. OXYCODONE/APAP                     /00867901/ [Concomitant]
     Dosage: 2.5-325

REACTIONS (1)
  - Cardiac arrest [Fatal]
